FAERS Safety Report 7511033-0 (Version None)
Quarter: 2011Q2

REPORT INFORMATION
  Report Type: 
  Country: None (occurrence: None)
  Receive Date: 20110531
  Receipt Date: 20110525
  Transmission Date: 20111010
  Serious: Yes (Other)
  Sender: FDA-Public Use
  Company Number: US-PFIZER INC-2011069761

PATIENT
  Sex: Female

DRUGS (2)
  1. SYNTHROID [Concomitant]
     Indication: THYROID DISORDER
     Dosage: UNK
     Dates: start: 20060101
  2. CHANTIX [Suspect]
     Indication: SMOKING CESSATION THERAPY
     Dosage: 1 MG, UNK
     Dates: start: 20071211, end: 20080209

REACTIONS (6)
  - MENTAL DISORDER [None]
  - ABNORMAL BEHAVIOUR [None]
  - DEPRESSION [None]
  - EMOTIONAL DISTRESS [None]
  - AGGRESSION [None]
  - SUICIDE ATTEMPT [None]
